FAERS Safety Report 25365137 (Version 1)
Quarter: 2025Q2

REPORT INFORMATION
  Report Type: Spontaneous
  Country: US (occurrence: US)
  Receive Date: 20250527
  Receipt Date: 20250527
  Transmission Date: 20250716
  Serious: No
  Sender: SANOFI AVENTIS
  Company Number: US-SANOFI-02532086

PATIENT
  Age: 67 Year
  Sex: Male

DRUGS (1)
  1. LANTUS SOLOSTAR [Suspect]
     Active Substance: INSULIN GLARGINE
     Indication: Type 2 diabetes mellitus
     Dosage: T TAKES 35 UNITS IN THE MORNING AND 64 UNITS AT NIGHT OF LANTUS SOLOSTAR PEN BID
     Route: 065

REACTIONS (2)
  - Off label use [Unknown]
  - Product storage error [Unknown]
